FAERS Safety Report 15932146 (Version 1)
Quarter: 2019Q1

REPORT INFORMATION
  Report Type: Spontaneous
  Country: US (occurrence: US)
  Receive Date: 20190207
  Receipt Date: 20190207
  Transmission Date: 20190417
  Serious: No
  Sender: FDA-Public Use
  Company Number: US-PFIZER INC-2019054489

PATIENT
  Age: 11 Year
  Sex: Female

DRUGS (1)
  1. GENOTROPIN [Suspect]
     Active Substance: SOMATROPIN
     Dosage: 1.2 MG, DAILY
     Dates: start: 20150307

REACTIONS (4)
  - Blood cholesterol increased [Unknown]
  - Blood 25-hydroxycholecalciferol decreased [Unknown]
  - Migraine [Recovering/Resolving]
  - Blood triglycerides increased [Unknown]
